FAERS Safety Report 5579048-X (Version None)
Quarter: 2007Q4

REPORT INFORMATION
  Report Type: 
  Country: None (occurrence: None)
  Receive Date: 20071227
  Receipt Date: 20071213
  Transmission Date: 20080405
  Serious: Yes (Hospitalization, Congenital Anomaly)
  Sender: FDA-Public Use
  Company Number: FABR-11780

PATIENT
  Age: 2 Month
  Sex: Female
  Weight: 6.3 kg

DRUGS (1)
  1. FABRAZYME [Suspect]
     Indication: DRUG EXPOSURE DURING PREGNANCY

REACTIONS (7)
  - ABSCESS NECK [None]
  - BRANCHIAL CYST [None]
  - CELLULITIS [None]
  - DERMATITIS [None]
  - DRUG EXPOSURE DURING PREGNANCY [None]
  - INFECTED CYST [None]
  - WOUND INFECTION STAPHYLOCOCCAL [None]
